FAERS Safety Report 8605471-2 (Version None)
Quarter: 2012Q3

REPORT INFORMATION
  Report Type: 
  Country: None (occurrence: None)
  Receive Date: 20120820
  Receipt Date: 20120809
  Transmission Date: 20120928
  Serious: Yes (Other)
  Sender: FDA-Public Use
  Company Number: JP-PERRIGO-12JP006937

PATIENT
  Age: 62 Year
  Sex: Male

DRUGS (1)
  1. IBUPROFEN [Suspect]
     Indication: HEADACHE
     Dosage: 400 MG, QD
     Route: 048

REACTIONS (4)
  - GASTROINTESTINAL DISORDER [None]
  - ABDOMINAL PAIN [None]
  - ILEAL STENOSIS [None]
  - ILEAL ULCER [None]
